FAERS Safety Report 20777351 (Version 2)
Quarter: 2022Q2

REPORT INFORMATION
  Report Type: Spontaneous
  Country: JP (occurrence: JP)
  Receive Date: 20220503
  Receipt Date: 20220517
  Transmission Date: 20220721
  Serious: Yes (Other)
  Sender: FDA-Public Use
  Company Number: JP-JNJFOC-20220500581

PATIENT
  Age: 8 Decade
  Sex: Male

DRUGS (2)
  1. RISPERDAL [Suspect]
     Active Substance: RISPERIDONE
     Indication: Neuropsychiatric symptoms
     Route: 048
  2. LACTULOSE [Concomitant]
     Active Substance: LACTULOSE
     Dosage: DOSE UNKNOWN
     Route: 048

REACTIONS (3)
  - Hepatic cirrhosis [Unknown]
  - Product use in unapproved indication [Unknown]
  - Off label use [Unknown]
